FAERS Safety Report 10479413 (Version 2)
Quarter: 2014Q3

REPORT INFORMATION
  Report Type: Spontaneous
  Country: GB (occurrence: GB)
  Receive Date: 20140926
  Receipt Date: 20140926
  Transmission Date: 20150326
  Serious: Yes (Life-Threatening, Hospitalization, Other)
  Sender: FDA-Public Use
  Company Number: GB-009507513-1408GBR004121

PATIENT
  Age: 37 Year
  Sex: Male

DRUGS (2)
  1. PENTASA [Concomitant]
     Active Substance: MESALAMINE
  2. BETAMETHASONE [Suspect]
     Active Substance: BETAMETHASONE
     Route: 048

REACTIONS (4)
  - Colitis ulcerative [Unknown]
  - Haemoglobin decreased [Unknown]
  - Adverse event [Unknown]
  - Myocardial infarction [Unknown]

NARRATIVE: CASE EVENT DATE: 2014
